FAERS Safety Report 25611577 (Version 1)
Quarter: 2025Q3

REPORT INFORMATION
  Report Type: Spontaneous
  Country: EU (occurrence: EU)
  Receive Date: 20250728
  Receipt Date: 20250728
  Transmission Date: 20251021
  Serious: Yes (Hospitalization)
  Sender: MYLAN
  Company Number: None

PATIENT
  Age: 91 Year
  Sex: Female
  Weight: 41 kg

DRUGS (40)
  1. ACETAMINOPHEN [Suspect]
     Active Substance: ACETAMINOPHEN
     Indication: Product used for unknown indication
     Dosage: 1000 MILLIGRAM, TID (1000*3/DAY)
     Route: 048
     Dates: start: 20240611, end: 20250511
  2. ACETAMINOPHEN [Suspect]
     Active Substance: ACETAMINOPHEN
     Dosage: 1000 MILLIGRAM, TID (1000*3/DAY)
     Dates: start: 20240611, end: 20250511
  3. ACETAMINOPHEN [Suspect]
     Active Substance: ACETAMINOPHEN
     Dosage: 1000 MILLIGRAM, TID (1000*3/DAY)
     Dates: start: 20240611, end: 20250511
  4. ACETAMINOPHEN [Suspect]
     Active Substance: ACETAMINOPHEN
     Dosage: 1000 MILLIGRAM, TID (1000*3/DAY)
     Route: 048
     Dates: start: 20240611, end: 20250511
  5. ACETAMINOPHEN [Suspect]
     Active Substance: ACETAMINOPHEN
     Dosage: 1000 MILLIGRAM, TID (1000*3/DAY)
     Route: 048
     Dates: start: 20250511
  6. ACETAMINOPHEN [Suspect]
     Active Substance: ACETAMINOPHEN
     Dosage: 1000 MILLIGRAM, TID (1000*3/DAY)
     Dates: start: 20250511
  7. ACETAMINOPHEN [Suspect]
     Active Substance: ACETAMINOPHEN
     Dosage: 1000 MILLIGRAM, TID (1000*3/DAY)
     Dates: start: 20250511
  8. ACETAMINOPHEN [Suspect]
     Active Substance: ACETAMINOPHEN
     Dosage: 1000 MILLIGRAM, TID (1000*3/DAY)
     Route: 048
     Dates: start: 20250511
  9. MIANSERIN [Suspect]
     Active Substance: MIANSERIN
     Indication: Depression
     Dosage: 15 MILLIGRAM, QD
     Route: 048
     Dates: start: 20240521, end: 20240617
  10. MIANSERIN [Suspect]
     Active Substance: MIANSERIN
     Dosage: 15 MILLIGRAM, QD
     Dates: start: 20240521, end: 20240617
  11. MIANSERIN [Suspect]
     Active Substance: MIANSERIN
     Dosage: 15 MILLIGRAM, QD
     Dates: start: 20240521, end: 20240617
  12. MIANSERIN [Suspect]
     Active Substance: MIANSERIN
     Dosage: 15 MILLIGRAM, QD
     Route: 048
     Dates: start: 20240521, end: 20240617
  13. MIANSERIN [Suspect]
     Active Substance: MIANSERIN
     Dosage: 30 MILLIGRAM, QD
     Route: 048
     Dates: start: 20240617
  14. MIANSERIN [Suspect]
     Active Substance: MIANSERIN
     Dosage: 30 MILLIGRAM, QD
     Dates: start: 20240617
  15. MIANSERIN [Suspect]
     Active Substance: MIANSERIN
     Dosage: 30 MILLIGRAM, QD
     Dates: start: 20240617
  16. MIANSERIN [Suspect]
     Active Substance: MIANSERIN
     Dosage: 30 MILLIGRAM, QD
     Route: 048
     Dates: start: 20240617
  17. BACTRIM [Suspect]
     Active Substance: SULFAMETHOXAZOLE\TRIMETHOPRIM
     Indication: Escherichia pyelonephritis
     Dosage: 2 DOSAGE FORM, QD (1 MORNING AND EVENING)
     Dates: start: 20250520, end: 20250527
  18. BACTRIM [Suspect]
     Active Substance: SULFAMETHOXAZOLE\TRIMETHOPRIM
     Dosage: 2 DOSAGE FORM, QD (1 MORNING AND EVENING)
     Route: 048
     Dates: start: 20250520, end: 20250527
  19. BACTRIM [Suspect]
     Active Substance: SULFAMETHOXAZOLE\TRIMETHOPRIM
     Dosage: 2 DOSAGE FORM, QD (1 MORNING AND EVENING)
     Route: 048
     Dates: start: 20250520, end: 20250527
  20. BACTRIM [Suspect]
     Active Substance: SULFAMETHOXAZOLE\TRIMETHOPRIM
     Dosage: 2 DOSAGE FORM, QD (1 MORNING AND EVENING)
     Dates: start: 20250520, end: 20250527
  21. LOVENOX [Concomitant]
     Active Substance: ENOXAPARIN SODIUM
     Indication: Thrombosis prophylaxis
     Dosage: 4000 INTERNATIONAL UNIT, QD (ANTI-XA/0.4 ML, SOLUTION FOR INJECTION IN PRE-FILLED SYRINGE)
     Dates: start: 20250511
  22. LOVENOX [Concomitant]
     Active Substance: ENOXAPARIN SODIUM
     Dosage: 4000 INTERNATIONAL UNIT, QD (ANTI-XA/0.4 ML, SOLUTION FOR INJECTION IN PRE-FILLED SYRINGE)
     Route: 058
     Dates: start: 20250511
  23. LOVENOX [Concomitant]
     Active Substance: ENOXAPARIN SODIUM
     Dosage: 4000 INTERNATIONAL UNIT, QD (ANTI-XA/0.4 ML, SOLUTION FOR INJECTION IN PRE-FILLED SYRINGE)
     Route: 058
     Dates: start: 20250511
  24. LOVENOX [Concomitant]
     Active Substance: ENOXAPARIN SODIUM
     Dosage: 4000 INTERNATIONAL UNIT, QD (ANTI-XA/0.4 ML, SOLUTION FOR INJECTION IN PRE-FILLED SYRINGE)
     Dates: start: 20250511
  25. FLUMAZENIL [Concomitant]
     Active Substance: FLUMAZENIL
     Indication: Toxicity to various agents
     Dosage: 2.4 MILLIGRAM, QD
     Dates: start: 20250511, end: 20250516
  26. FLUMAZENIL [Concomitant]
     Active Substance: FLUMAZENIL
     Dosage: 2.4 MILLIGRAM, QD
     Route: 042
     Dates: start: 20250511, end: 20250516
  27. FLUMAZENIL [Concomitant]
     Active Substance: FLUMAZENIL
     Dosage: 2.4 MILLIGRAM, QD
     Route: 042
     Dates: start: 20250511, end: 20250516
  28. FLUMAZENIL [Concomitant]
     Active Substance: FLUMAZENIL
     Dosage: 2.4 MILLIGRAM, QD
     Dates: start: 20250511, end: 20250516
  29. URAPIDIL [Concomitant]
     Active Substance: URAPIDIL
     Indication: Hypertension
     Dosage: UNK, QD
     Dates: start: 20250513, end: 20250516
  30. URAPIDIL [Concomitant]
     Active Substance: URAPIDIL
     Dosage: UNK, QD
     Route: 042
     Dates: start: 20250513, end: 20250516
  31. URAPIDIL [Concomitant]
     Active Substance: URAPIDIL
     Dosage: UNK, QD
     Route: 042
     Dates: start: 20250513, end: 20250516
  32. URAPIDIL [Concomitant]
     Active Substance: URAPIDIL
     Dosage: UNK, QD
     Dates: start: 20250513, end: 20250516
  33. MIDAZOLAM HYDROCHLORIDE [Concomitant]
     Active Substance: MIDAZOLAM HYDROCHLORIDE
     Indication: Agitation
  34. MIDAZOLAM HYDROCHLORIDE [Concomitant]
     Active Substance: MIDAZOLAM HYDROCHLORIDE
     Route: 058
  35. MIDAZOLAM HYDROCHLORIDE [Concomitant]
     Active Substance: MIDAZOLAM HYDROCHLORIDE
     Route: 058
  36. MIDAZOLAM HYDROCHLORIDE [Concomitant]
     Active Substance: MIDAZOLAM HYDROCHLORIDE
  37. RAMIPRIL [Concomitant]
     Active Substance: RAMIPRIL
     Indication: Hypertension
     Dosage: 1.25 MILLIGRAM, QD
     Dates: start: 20250518
  38. RAMIPRIL [Concomitant]
     Active Substance: RAMIPRIL
     Dosage: 1.25 MILLIGRAM, QD
     Route: 048
     Dates: start: 20250518
  39. RAMIPRIL [Concomitant]
     Active Substance: RAMIPRIL
     Dosage: 1.25 MILLIGRAM, QD
     Route: 048
     Dates: start: 20250518
  40. RAMIPRIL [Concomitant]
     Active Substance: RAMIPRIL
     Dosage: 1.25 MILLIGRAM, QD
     Dates: start: 20250518

REACTIONS (2)
  - Hepatocellular injury [Recovered/Resolved]
  - Cholestasis [Recovered/Resolved]

NARRATIVE: CASE EVENT DATE: 20250522
